FAERS Safety Report 5035880-2 (Version None)
Quarter: 2006Q2

REPORT INFORMATION
  Report Type: 
  Country: None (occurrence: None)
  Receive Date: 20060526
  Receipt Date: 20060313
  Transmission Date: 20061013
  Serious: Yes (Hospitalization, Other)
  Sender: FDA-Public Use
  Company Number: 222659

PATIENT
  Age: 62 Year
  Sex: Female
  Weight: 77.1 kg

DRUGS (20)
  1. RAPTIVA [Suspect]
     Indication: PSORIASIS
     Dosage: 1 MG/KG,1/WEEK
     Dates: start: 20040519, end: 20060228
  2. PROZAC [Concomitant]
  3. ATIVAN [Concomitant]
  4. BENADRYL [Concomitant]
  5. ZANTAC [Concomitant]
  6. TYLENOL WITH CODEINE (ACETAMINOPHEN, CODEINE PHOSPHATE) [Concomitant]
  7. WELLBUTRIN [Concomitant]
  8. SALMETEROL XINAFOATE (SALMETEROL XINAFOATE) [Concomitant]
  9. COMBIVENT INHALER (ALBUTEROL, ALBUTEROL SULFATE, IPRATROPIUM BROMIDE) [Concomitant]
  10. LASIX [Concomitant]
  11. ALBUTEROL INHALER (ALBUTEROL/ALBUTEROL SULFATE) [Concomitant]
  12. MINERAL OIL (MINERAL OIL) [Concomitant]
  13. SALICYLIC ACID (SALICYCLIC ACID) [Concomitant]
  14. SULINDAC [Concomitant]
  15. NAPROSYN [Concomitant]
  16. VITAMIN E [Concomitant]
  17. NARROW BAND UVB (PHOTOTHERAPY UVB) [Concomitant]
  18. EFALIZUMAB (EFALIZUMAB) [Concomitant]
  19. FLOVENT [Concomitant]
  20. CSA (CYCLOSPORINE) [Concomitant]

REACTIONS (1)
  - THROMBOCYTOPENIA [None]
